FAERS Safety Report 4448745-1 (Version None)
Quarter: 2004Q3

REPORT INFORMATION
  Report Type: 
  Country: None (occurrence: None)
  Receive Date: 20040909
  Receipt Date: 20040824
  Transmission Date: 20050211
  Serious: Yes (Hospitalization)
  Sender: FDA-Public Use
  Company Number: 2004-BP-07353AU

PATIENT
  Sex: Female

DRUGS (6)
  1. MOBIC [Suspect]
     Dosage: 7.5 MG (7.5 MG, 7.5 DAILY) PO
     Route: 048
     Dates: start: 20031230, end: 20040221
  2. AMIZIDE (MODURETIC ^MSD^) (TA) [Suspect]
     Dosage: PO
     Route: 048
     Dates: end: 20040221
  3. AMLODIPINE (AMLODIPINE) (TA) [Suspect]
     Dosage: 5 MG (5 MG, 5 MG DAILY) PO
     Route: 048
  4. ISOSORBIDE SALTS (NR) [Concomitant]
  5. ATENOLOL (ATENOLOL) (NR) [Concomitant]
  6. PERHEXILINE (PERHEXILINE) (NR) [Concomitant]

REACTIONS (2)
  - HYPERKALAEMIA [None]
  - RENAL FAILURE ACUTE [None]
